FAERS Safety Report 5247398-2 (Version None)
Quarter: 2007Q1

REPORT INFORMATION
  Report Type: 
  Country: None (occurrence: None)
  Receive Date: 20070227
  Receipt Date: 20070222
  Transmission Date: 20070707
  Serious: Yes (Hospitalization)
  Sender: FDA-Public Use
  Company Number: TW-BAYER-200711091GDS

PATIENT
  Age: 17 Year
  Sex: Male

DRUGS (4)
  1. DACARBAZINE [Suspect]
     Indication: HODGKIN'S DISEASE
     Route: 065
     Dates: start: 20030605
  2. DOXORUBICIN HCL [Suspect]
     Indication: HODGKIN'S DISEASE
     Route: 065
     Dates: start: 20030605
  3. BLEOMYCIN [Suspect]
     Indication: HODGKIN'S DISEASE
     Route: 065
     Dates: start: 20030605
  4. VINBLASTINE SULFATE [Suspect]
     Indication: HODGKIN'S DISEASE
     Route: 065

REACTIONS (5)
  - CHILLS [None]
  - CRYPTOGENIC ORGANISING PNEUMONIA [None]
  - DYSPNOEA [None]
  - HAEMOPTYSIS [None]
  - PYREXIA [None]
